FAERS Safety Report 7504139-3 (Version None)
Quarter: 2011Q2

REPORT INFORMATION
  Report Type: 
  Country: None (occurrence: None)
  Receive Date: 20110525
  Receipt Date: 20110517
  Transmission Date: 20111010
  Serious: Yes (Other)
  Sender: FDA-Public Use
  Company Number: US-B.I. PHARMACEUTICALS,INC./RIDGEFIELD-2011-BP-13304BP

PATIENT
  Sex: Male

DRUGS (9)
  1. PREDNISONE [Concomitant]
  2. COREG CR [Concomitant]
  3. ZOCOR [Concomitant]
  4. ENBREL [Concomitant]
  5. ACCUPRIL [Concomitant]
  6. PRADAXA [Suspect]
     Indication: ATRIAL FIBRILLATION
     Dosage: 300 MG
     Dates: start: 20110401, end: 20110517
  7. CARDIZEM CD [Concomitant]
  8. PLAVIX [Concomitant]
  9. IMURAN [Concomitant]

REACTIONS (1)
  - RENAL HAEMATOMA [None]
